FAERS Safety Report 5953959-5 (Version None)
Quarter: 2008Q4

REPORT INFORMATION
  Report Type: 
  Country: None (occurrence: None)
  Receive Date: 20081114
  Receipt Date: 20081104
  Transmission Date: 20090506
  Serious: Yes (Other)
  Sender: FDA-Public Use
  Company Number: JP-PFIZER INC-2008092937

PATIENT

DRUGS (2)
  1. GABAPEN [Suspect]
     Route: 048
  2. MYSTAN [Concomitant]
     Route: 048

REACTIONS (1)
  - CARDIAC ARREST [None]
